FAERS Safety Report 6757780-X (Version None)
Quarter: 2010Q2

REPORT INFORMATION
  Report Type: 
  Country: None (occurrence: None)
  Receive Date: 20100607
  Receipt Date: 20100524
  Transmission Date: 20101027
  Serious: Yes (Other)
  Sender: FDA-Public Use
  Company Number: MY-RANBAXY-2010R3-33969

PATIENT

DRUGS (2)
  1. CEPHALEXIN [Suspect]
     Indication: GASTROENTERITIS
     Dosage: 250 MG, QD
     Route: 048
  2. METRONIDAZOLE [Suspect]
     Indication: GASTROENTERITIS
     Dosage: 200 MG, QD
     Route: 048

REACTIONS (4)
  - DYSPNOEA [None]
  - FACE OEDEMA [None]
  - ORBITAL OEDEMA [None]
  - RASH [None]
